FAERS Safety Report 14190657 (Version 1)
Quarter: 2017Q4

REPORT INFORMATION
  Report Type: Spontaneous
  Country: US (occurrence: US)
  Receive Date: 20171114
  Receipt Date: 20171114
  Transmission Date: 20180321
  Serious: Yes (Disabling)
  Sender: FDA-Public Use
  Company Number: None

PATIENT
  Age: 71 Year
  Sex: Female
  Weight: 50.4 kg

DRUGS (10)
  1. CHLORHEXADINE [Concomitant]
     Active Substance: CHLORHEXIDINE
  2. VITAMIN C [Concomitant]
     Active Substance: ASCORBIC ACID
  3. PROLIA [Suspect]
     Active Substance: DENOSUMAB
     Indication: OSTEOPOROSIS
     Dosage: ?          QUANTITY:1 INJECTION(S);OTHER FREQUENCY:SHOT EVERY 6 MONTH;?
     Route: 058
     Dates: start: 20160505, end: 20170509
  4. POTASSIUM CITRATE. [Concomitant]
     Active Substance: POTASSIUM CITRATE
  5. VITAMIN B [Concomitant]
     Active Substance: VITAMIN B
  6. OMEGA 3 FISH OIL [Concomitant]
     Active Substance: FISH OIL\OMEGA-3 FATTY ACIDS
  7. HYDROCHLOROTHIAZIDE. [Concomitant]
     Active Substance: HYDROCHLOROTHIAZIDE
  8. MULTI VITAMIN [Concomitant]
     Active Substance: VITAMINS
  9. FEMARA [Concomitant]
     Active Substance: LETROZOLE
  10. VITAMIN D3 [Concomitant]
     Active Substance: CHOLECALCIFEROL

REACTIONS (2)
  - Osteonecrosis of jaw [None]
  - Oral disorder [None]

NARRATIVE: CASE EVENT DATE: 20170828
